FAERS Safety Report 7147977-1 (Version None)
Quarter: 2010Q4

REPORT INFORMATION
  Report Type: 
  Country: None (occurrence: None)
  Receive Date: 20101207
  Receipt Date: 20101207
  Transmission Date: 20110411
  Serious: No
  Sender: FDA-Public Use
  Company Number: None

PATIENT
  Sex: Female
  Weight: 74.8435 kg

DRUGS (1)
  1. MELOXICAM [Suspect]
     Indication: ARTHRITIS
     Dosage: 1 TABLET EVERY 12 HRS PO
     Route: 048
     Dates: start: 20090301, end: 20101206

REACTIONS (1)
  - DEAFNESS [None]
